FAERS Safety Report 10128515 (Version 1)
Quarter: 2014Q2

REPORT INFORMATION
  Report Type: Spontaneous
  Country: None (occurrence: None)
  Receive Date: 20140425
  Receipt Date: 20140425
  Transmission Date: 20141212
  Serious: Yes (Hospitalization)
  Sender: FDA-Public Use
  Company Number: None

PATIENT
  Age: 61 Year
  Sex: Female
  Weight: 54.1 kg

DRUGS (12)
  1. RUXOLITINIB [Suspect]
     Indication: BREAST CANCER
     Route: 048
     Dates: start: 20140204
  2. PACLITAXEL [Suspect]
     Indication: BREAST CANCER
     Route: 042
     Dates: start: 20140204, end: 20140401
  3. CALCIUM + D [Concomitant]
  4. CITALOPRAM [Concomitant]
  5. COLACE [Concomitant]
  6. COMPAZINE [Concomitant]
  7. EMLA [Concomitant]
  8. LORAZEPAM [Concomitant]
  9. OMEPRAZOLE [Concomitant]
  10. OXYCODONE [Concomitant]
  11. SYNTHROID [Concomitant]
  12. VITAMIN B6 [Concomitant]

REACTIONS (2)
  - Tachycardia [None]
  - Rectal haemorrhage [None]
